FAERS Safety Report 7475782-5 (Version None)
Quarter: 2011Q1

REPORT INFORMATION
  Report Type: 
  Country: None (occurrence: None)
  Receive Date: 20110308
  Receipt Date: 20101210
  Transmission Date: 20110831
  Serious: Yes (Death, Hospitalization)
  Sender: FDA-Public Use
  Company Number: 2010PROUSA00033

PATIENT
  Age: 65 Year
  Sex: Male

DRUGS (25)
  1. PREDNISONE [Concomitant]
  2. SENNA (SENNA ALEXANDRINA) [Concomitant]
  3. SKELAXIN [Concomitant]
  4. IRBESARTAN (IRBESARTAN) [Concomitant]
  5. DARVOCET (DEXTROPROPOXYPHENE HYDROCHLORIDE, PARACETAMOL) [Concomitant]
  6. PROVENGE [Suspect]
     Indication: PROSTATE CANCER METASTATIC
     Dosage: 250 ML, SINGLE, INTRAVENOUS, 250 ML, SINGLE, INTRAVENOUS, 250 ML, SINGLE, INTRAVENOUS
     Route: 042
     Dates: start: 20100924, end: 20100924
  7. PROVENGE [Suspect]
     Indication: PROSTATE CANCER METASTATIC
     Dosage: 250 ML, SINGLE, INTRAVENOUS, 250 ML, SINGLE, INTRAVENOUS, 250 ML, SINGLE, INTRAVENOUS
     Route: 042
     Dates: start: 20100913, end: 20100913
  8. PROVENGE [Suspect]
     Indication: PROSTATE CANCER METASTATIC
     Dosage: 250 ML, SINGLE, INTRAVENOUS, 250 ML, SINGLE, INTRAVENOUS, 250 ML, SINGLE, INTRAVENOUS
     Route: 042
     Dates: start: 20100719, end: 20100719
  9. AVAPRO [Concomitant]
  10. AMBIEN [Concomitant]
  11. ALLEGRA [Concomitant]
  12. COREG [Concomitant]
  13. PROTONIX [Concomitant]
  14. DIGOXIN [Concomitant]
  15. LASIX [Concomitant]
  16. VIOXX [Concomitant]
  17. SINGULAIR [Concomitant]
  18. SPIRONOLACTONE [Concomitant]
  19. HUMULIN (INSULIN HUMAN) [Concomitant]
  20. SINGULAIR [Concomitant]
  21. ALDACTONE [Concomitant]
  22. LOVENOX [Concomitant]
  23. NOVOLIN (INSULIN) [Concomitant]
  24. LANOXIN [Concomitant]
  25. LUPRON [Concomitant]

REACTIONS (7)
  - TRANSIENT ISCHAEMIC ATTACK [None]
  - CEREBROVASCULAR ACCIDENT [None]
  - ATRIAL SEPTAL DEFECT [None]
  - INFLUENZA LIKE ILLNESS [None]
  - BACK PAIN [None]
  - SEPSIS [None]
  - MITRAL VALVE INCOMPETENCE [None]
